FAERS Safety Report 9825382 (Version 1)
Quarter: 2014Q1

REPORT INFORMATION
  Report Type: Spontaneous
  Country: US (occurrence: None)
  Receive Date: 20140115
  Receipt Date: 20140115
  Transmission Date: 20141002
  Serious: Yes (Hospitalization)
  Sender: FDA-Public Use
  Company Number: None

PATIENT
  Age: 73 Year
  Sex: Female
  Weight: 108 kg

DRUGS (1)
  1. XARELTO, 20 MG, JANSSEN PHARM [Suspect]
     Indication: ATRIAL FIBRILLATION
     Dosage: 1 TAB
     Route: 048
     Dates: start: 20130905, end: 20130916

REACTIONS (5)
  - Basal ganglia stroke [None]
  - Fall [None]
  - Loss of consciousness [None]
  - Dizziness [None]
  - Ischaemic stroke [None]
